FAERS Safety Report 10143903 (Version 2)
Quarter: 2014Q2

REPORT INFORMATION
  Report Type: Spontaneous
  Country: GB (occurrence: GB)
  Receive Date: 20140430
  Receipt Date: 20140522
  Transmission Date: 20141212
  Serious: Yes (Death, Other)
  Sender: FDA-Public Use
  Company Number: GB-JNJFOC-20140418923

PATIENT
  Age: 64 Year
  Sex: Male

DRUGS (5)
  1. ABIRATERONE ACETATE [Suspect]
     Indication: PROSTATE CANCER METASTATIC
     Route: 048
     Dates: start: 20130830, end: 20131010
  2. PREDNISOLONE [Concomitant]
     Indication: PROSTATE CANCER
     Route: 065
     Dates: start: 20130723, end: 20131010
  3. OXYCONTIN [Concomitant]
     Indication: PAIN
     Route: 065
     Dates: end: 20131202
  4. LEVOMEPROMAZINE [Concomitant]
     Indication: PAIN
     Route: 065
     Dates: end: 20131017
  5. HALOPERIDOL [Concomitant]
     Indication: PAIN
     Route: 065
     Dates: end: 20131017

REACTIONS (10)
  - Prostate cancer metastatic [Fatal]
  - Hallucination, visual [Not Recovered/Not Resolved]
  - Anxiety [Not Recovered/Not Resolved]
  - Claustrophobia [Not Recovered/Not Resolved]
  - Panic attack [Not Recovered/Not Resolved]
  - Agitation [Not Recovered/Not Resolved]
  - Emotional distress [Not Recovered/Not Resolved]
  - Activities of daily living impaired [Not Recovered/Not Resolved]
  - Affect lability [Not Recovered/Not Resolved]
  - Confusional state [Not Recovered/Not Resolved]
